FAERS Safety Report 21553463 (Version 1)
Quarter: 2022Q4

REPORT INFORMATION
  Report Type: Report from Study
  Country: US (occurrence: US)
  Receive Date: 20221104
  Receipt Date: 20221104
  Transmission Date: 20230112
  Serious: No
  Sender: FDA-Public Use
  Company Number: US-ABBVIE-4152577

PATIENT
  Sex: Female

DRUGS (4)
  1. HUMIRA [Suspect]
     Active Substance: ADALIMUMAB
     Indication: Rheumatoid arthritis
     Route: 058
  2. Pfizer Biotech covid-19 vaccine [Concomitant]
     Indication: COVID-19 immunisation
     Dosage: 1ST DOSE,?ONE IN ONCE
     Route: 030
     Dates: start: 20210406, end: 20210406
  3. Pfizer Biotech covid-19 vaccine [Concomitant]
     Indication: COVID-19 immunisation
     Dosage: 2ND DOSE,?ONE IN ONCE
     Route: 030
     Dates: start: 20210427, end: 20210427
  4. Pfizer Biotech covid-19 vaccine [Concomitant]
     Indication: COVID-19 immunisation
     Dosage: BOOSTER DOSE,?ONE IN ONCE
     Route: 030
     Dates: start: 20220123, end: 20220123

REACTIONS (1)
  - Rheumatoid arthritis [Recovered/Resolved]
